FAERS Safety Report 7428802-8 (Version None)
Quarter: 2011Q2

REPORT INFORMATION
  Report Type: 
  Country: None (occurrence: None)
  Receive Date: 20110413
  Receipt Date: 20110331
  Transmission Date: 20111010
  Serious: Yes (Hospitalization)
  Sender: FDA-Public Use
  Company Number: JP-2011-10445

PATIENT
  Age: 77 Year
  Sex: Male

DRUGS (7)
  1. PLETAL [Suspect]
     Indication: CEREBRAL INFARCTION
     Dosage: 59 MG MILLIGRAM(S), BID, ORAL; 100 MG MILLIGRAM(S), BID, ORAL
     Route: 048
     Dates: start: 20100209, end: 20110305
  2. PLETAL [Suspect]
     Indication: CEREBRAL INFARCTION
     Dosage: 59 MG MILLIGRAM(S), BID, ORAL; 100 MG MILLIGRAM(S), BID, ORAL
     Route: 048
     Dates: start: 20100202, end: 20110208
  3. GLYCEOL (CONCENTRATED) [Concomitant]
  4. CRESTOR [Concomitant]
  5. KENTAN (LOXOPROFEN SODIUM) [Concomitant]
  6. DASEN (SERRAPEPTASE) [Concomitant]
  7. MUCOSTA (REBAMIPIDE) [Concomitant]

REACTIONS (1)
  - DIVERTICULUM INTESTINAL HAEMORRHAGIC [None]
